FAERS Safety Report 9664684 (Version 8)
Quarter: 2014Q3

REPORT INFORMATION
  Report Type: Report from Study
  Country: TW (occurrence: TW)
  Receive Date: 20131101
  Receipt Date: 20140708
  Transmission Date: 20150326
  Serious: Yes (Death, Life-Threatening, Hospitalization)
  Sender: FDA-Public Use
  Company Number: TW-GLAXOSMITHKLINE-Z0021514A

PATIENT
  Age: 49 Year
  Sex: Female
  Weight: 50 kg

DRUGS (97)
  1. INDOMETHACIN. [Concomitant]
     Active Substance: INDOMETHACIN
     Indication: PYREXIA
     Dosage: 50MG SINGLE DOSE
     Route: 054
     Dates: start: 20131026, end: 20131026
  2. ETHAMBUTOL [Concomitant]
     Active Substance: ETHAMBUTOL HYDROCHLORIDE
     Indication: TUBERCULOSIS
     Dosage: 800MG PER DAY
     Route: 048
     Dates: start: 20131027, end: 20131104
  3. ACETAMINOPHEN. [Concomitant]
     Active Substance: ACETAMINOPHEN
     Indication: PYREXIA
     Dosage: 500MG AS REQUIRED
     Route: 048
     Dates: start: 20131027, end: 20131031
  4. FAMOTIDINE. [Concomitant]
     Active Substance: FAMOTIDINE
     Indication: GASTRIC ULCER
     Dosage: 20MG TWICE PER DAY
     Route: 048
     Dates: start: 20131027, end: 20131126
  5. FUROSEMIDE. [Concomitant]
     Active Substance: FUROSEMIDE
     Indication: OEDEMA
     Dosage: 20MG PER DAY
     Route: 042
     Dates: start: 20131027, end: 20131029
  6. MIDAZOLAM [Concomitant]
     Active Substance: MIDAZOLAM\MIDAZOLAM HYDROCHLORIDE
     Indication: BRONCHOSCOPY
     Dosage: 5MG SINGLE DOSE
     Route: 042
     Dates: start: 20131027, end: 20131027
  7. DIOCTAHEDRAL SMECTITE [Concomitant]
     Indication: DIARRHOEA
     Dosage: 3000MG THREE TIMES PER DAY
     Route: 048
     Dates: start: 20131030, end: 20131125
  8. CEFEPIME [Concomitant]
     Active Substance: CEFEPIME\CEFEPIME HYDROCHLORIDE
     Indication: PNEUMONIA
     Dosage: 2000MG THREE TIMES PER DAY
     Route: 042
     Dates: start: 20131101, end: 20131113
  9. PREDNISOLONE. [Concomitant]
     Active Substance: PREDNISOLONE
     Indication: SYSTEMIC LUPUS ERYTHEMATOSUS
     Dosage: 10MG TWICE PER DAY
     Route: 048
     Dates: start: 20131114, end: 20131121
  10. METHYLPREDNISOLONE [Concomitant]
     Active Substance: METHYLPREDNISOLONE
     Indication: SYSTEMIC LUPUS ERYTHEMATOSUS
     Dosage: 1000MG PER DAY
     Route: 042
     Dates: start: 20130816, end: 20130818
  11. PREDNISOLONE. [Concomitant]
     Active Substance: PREDNISOLONE
     Indication: SYSTEMIC LUPUS ERYTHEMATOSUS
     Dosage: 15MG TWICE PER DAY
     Route: 048
     Dates: start: 20130907, end: 20130907
  12. PREDNISOLONE. [Concomitant]
     Active Substance: PREDNISOLONE
     Indication: SYSTEMIC LUPUS ERYTHEMATOSUS
     Dosage: 15MG THREE TIMES PER DAY
     Route: 048
     Dates: start: 20130908, end: 20130912
  13. MYCOPHENOLATE MOFETIL. [Concomitant]
     Active Substance: MYCOPHENOLATE MOFETIL
     Indication: SYSTEMIC LUPUS ERYTHEMATOSUS
     Dosage: 500MG TWICE PER DAY
     Route: 048
     Dates: start: 20130816, end: 20130822
  14. RIFATER [Concomitant]
     Active Substance: ISONIAZID\PYRAZINAMIDE\RIFAMPIN
     Indication: TUBERCULOSIS
     Dosage: 4TAB PER DAY
     Route: 048
     Dates: start: 20131027, end: 20131104
  15. VITAMIN B6 [Concomitant]
     Active Substance: PYRIDOXINE HYDROCHLORIDE
     Indication: PROPHYLAXIS
     Dosage: 50MG PER DAY
     Route: 048
     Dates: start: 20131027, end: 20131104
  16. ACETAMINOPHEN. [Concomitant]
     Active Substance: ACETAMINOPHEN
     Indication: PYREXIA
     Dosage: 500MG FOUR TIMES PER DAY
     Route: 048
     Dates: start: 20131031, end: 20131031
  17. MORPHINE HCL [Concomitant]
     Active Substance: MORPHINE HYDROCHLORIDE
     Indication: PAIN PROPHYLAXIS
     Dosage: 20MG FOUR TIMES PER DAY
     Route: 048
     Dates: start: 20131107, end: 20131125
  18. HYDROCORTISONE SODIUM SUCCINATE [Concomitant]
     Active Substance: HYDROCORTISONE SODIUM SUCCINATE
     Indication: DYSPNOEA
     Dosage: 100MG SINGLE DOSE
     Route: 042
     Dates: start: 20131120, end: 20131120
  19. PREDNISOLONE. [Concomitant]
     Active Substance: PREDNISOLONE
     Indication: SYSTEMIC LUPUS ERYTHEMATOSUS
     Dosage: 17.5MG PER DAY
     Route: 048
     Dates: start: 20131018, end: 20131024
  20. MYCOPHENOLATE MOFETIL. [Concomitant]
     Active Substance: MYCOPHENOLATE MOFETIL
     Indication: SYSTEMIC LUPUS ERYTHEMATOSUS
     Dosage: 1.5G TWICE PER DAY
     Route: 048
     Dates: start: 20130908, end: 20131025
  21. AZITHROMYCIN [Concomitant]
     Active Substance: AZITHROMYCIN ANHYDROUS
     Indication: PNEUMONIA
     Dosage: 500MG PER DAY
     Route: 042
     Dates: start: 20131027, end: 20131029
  22. GANCICLOVIR [Concomitant]
     Active Substance: GANCICLOVIR
     Indication: CYTOMEGALOVIRUS INFECTION
     Dosage: 250MG PER DAY
     Route: 042
     Dates: start: 20131029, end: 20131112
  23. MORPHINE HCL [Concomitant]
     Active Substance: MORPHINE HYDROCHLORIDE
     Indication: PAIN
     Dosage: 5MG SINGLE DOSE
     Route: 042
     Dates: start: 20131101, end: 20131101
  24. MORPHINE HCL [Concomitant]
     Active Substance: MORPHINE HYDROCHLORIDE
     Indication: PAIN
     Dosage: 10MG FOUR TIMES PER DAY
     Route: 048
     Dates: start: 20131106, end: 20131107
  25. INDOMETHACIN. [Concomitant]
     Active Substance: INDOMETHACIN
     Indication: PYREXIA
     Dosage: 50MG SINGLE DOSE
     Route: 054
     Dates: start: 20131115, end: 20131115
  26. ACETYLCYSTEINE. [Concomitant]
     Active Substance: ACETYLCYSTEINE
     Indication: PNEUMONIA
     Dosage: 1TAB TWICE PER DAY
     Route: 048
     Dates: start: 20131116, end: 20131120
  27. IMIPENEM AND CILASTATIN [Concomitant]
     Active Substance: CILASTATIN SODIUM\IMIPENEM
     Indication: PNEUMONIA
     Dosage: 4 PER DAY
     Route: 042
     Dates: start: 20131116, end: 20131118
  28. TEICOPLANIN [Concomitant]
     Active Substance: TEICOPLANIN
     Indication: PNEUMONIA
     Dosage: 400MG PER DAY
     Route: 042
     Dates: start: 20131116, end: 20131118
  29. INDOMETHACIN. [Concomitant]
     Active Substance: INDOMETHACIN
     Indication: PYREXIA
     Dosage: 50MG SINGLE DOSE
     Route: 054
     Dates: start: 20131120, end: 20131120
  30. CANDESARTAN [Concomitant]
     Active Substance: CANDESARTAN
     Indication: HYPERTENSION
     Dosage: 8MG PER DAY
     Route: 048
     Dates: start: 20131120, end: 20131125
  31. MYCOPHENOLATE MOFETIL. [Concomitant]
     Active Substance: MYCOPHENOLATE MOFETIL
     Indication: SYSTEMIC LUPUS ERYTHEMATOSUS
     Dosage: 1G TWICE PER DAY
     Route: 048
     Dates: start: 20130823, end: 20130829
  32. BELIMUMAB [Suspect]
     Active Substance: BELIMUMAB
     Indication: LUPUS NEPHRITIS
     Dosage: 10MGK CYCLIC
     Route: 042
     Dates: start: 20130827, end: 20131022
  33. CEFTAZIDIME. [Concomitant]
     Active Substance: CEFTAZIDIME
     Indication: PNEUMONIA
     Dosage: 2000MG THREE TIMES PER DAY
     Route: 042
     Dates: start: 20131026, end: 20131027
  34. TAMIFLU [Concomitant]
     Active Substance: OSELTAMIVIR PHOSPHATE
     Indication: ACUTE RESPIRATORY DISTRESS SYNDROME
     Dosage: 75MG TWICE PER DAY
     Route: 048
     Dates: start: 20131028, end: 20131106
  35. INDOMETHACIN. [Concomitant]
     Active Substance: INDOMETHACIN
     Indication: PYREXIA
     Dosage: 50MG AS REQUIRED
     Route: 054
     Dates: start: 20131028, end: 20131104
  36. COTRIMOXAZOLE [Concomitant]
     Active Substance: SULFAMETHOXAZOLE\TRIMETHOPRIM
     Indication: PNEUMONIA
     Dosage: 15MG THREE TIMES PER DAY
     Route: 042
     Dates: start: 20131031, end: 20131113
  37. CISATRACURIUM [Concomitant]
     Active Substance: CISATRACURIUM
     Indication: PRODUCT USED FOR UNKNOWN INDICATION
     Dosage: 200MG CONTINUOUS
     Route: 042
     Dates: start: 20131031, end: 20131115
  38. PROPRANOLOL [Concomitant]
     Active Substance: PROPRANOLOL\PROPRANOLOL HYDROCHLORIDE
     Indication: TACHYCARDIA
     Dosage: 10MG THREE TIMES PER DAY
     Route: 048
     Dates: start: 20131031, end: 20131101
  39. DILTIAZEM HCL [Concomitant]
     Active Substance: DILTIAZEM HYDROCHLORIDE
     Indication: HYPERTENSION
     Dosage: 30MG THREE TIMES PER DAY
     Route: 048
     Dates: start: 20131103, end: 20131123
  40. MORPHINE HCL [Concomitant]
     Active Substance: MORPHINE HYDROCHLORIDE
     Indication: DYSPNOEA
     Dosage: 10MG AS REQUIRED
     Route: 042
     Dates: start: 20131119, end: 20131126
  41. IMIPENEM AND CILASTATIN [Concomitant]
     Active Substance: CILASTATIN SODIUM\IMIPENEM
     Indication: PNEUMONIA
     Dosage: 4 PER DAY
     Route: 042
     Dates: start: 20131120, end: 20131126
  42. TEICOPLANIN [Concomitant]
     Active Substance: TEICOPLANIN
     Indication: PNEUMONIA
     Dosage: 400MG PER DAY
     Route: 042
     Dates: start: 20131124, end: 20131126
  43. CISATRACURIUM [Concomitant]
     Active Substance: CISATRACURIUM
     Dosage: 100MG CONTINUOUS
     Route: 042
     Dates: start: 20131125, end: 20131126
  44. PREDNISOLONE. [Concomitant]
     Active Substance: PREDNISOLONE
     Indication: SYSTEMIC LUPUS ERYTHEMATOSUS
     Dosage: 15MG PER DAY
     Route: 048
     Dates: start: 20131025, end: 20131025
  45. NOREPINEPHRINE [Concomitant]
     Active Substance: NOREPINEPHRINE\NOREPINEPHRINE BITARTRATE
     Indication: PRODUCT USED FOR UNKNOWN INDICATION
     Dosage: 16MG CONTINUOUS
     Route: 042
     Dates: start: 20131101, end: 20131103
  46. MORPHINE HCL [Concomitant]
     Active Substance: MORPHINE HYDROCHLORIDE
     Indication: PAIN PROPHYLAXIS
     Dosage: 10MG SINGLE DOSE
     Route: 042
     Dates: start: 20131104, end: 20131104
  47. MORPHINE HCL [Concomitant]
     Active Substance: MORPHINE HYDROCHLORIDE
     Indication: DYSPNOEA
     Dosage: 10MG AS REQUIRED
     Route: 042
     Dates: start: 20131107, end: 20131126
  48. CEFEPIME [Concomitant]
     Active Substance: CEFEPIME\CEFEPIME HYDROCHLORIDE
     Indication: PNEUMONIA
     Dosage: 2000MG THREE TIMES PER DAY
     Route: 042
     Dates: start: 20131115, end: 20131116
  49. CEFEPIME [Concomitant]
     Active Substance: CEFEPIME\CEFEPIME HYDROCHLORIDE
     Indication: PNEUMONIA
     Dosage: 2000MG THREE TIMES PER DAY
     Route: 042
     Dates: start: 20131118, end: 20131120
  50. MORPHINE HCL [Concomitant]
     Active Substance: MORPHINE HYDROCHLORIDE
     Indication: PAIN PROPHYLAXIS
     Dosage: 10MG SINGLE DOSE
     Route: 042
     Dates: start: 20131119, end: 20131119
  51. IBUPROFEN. [Concomitant]
     Active Substance: IBUPROFEN
     Indication: PYREXIA
     Dosage: 400MG AS REQUIRED
     Route: 048
     Dates: start: 20131119, end: 20131126
  52. METHYLPREDNISOLONE [Concomitant]
     Active Substance: METHYLPREDNISOLONE
     Indication: DYSPNOEA
     Dosage: 40MG SINGLE DOSE
     Route: 042
     Dates: start: 20131120, end: 20131120
  53. GLUCOSE 50% [Concomitant]
     Active Substance: DEXTROSE
     Indication: HYPOGLYCAEMIA
     Dosage: 80ML FOUR TIMES PER DAY
     Route: 042
     Dates: start: 20131125, end: 20131126
  54. PREDNISOLONE. [Concomitant]
     Active Substance: PREDNISOLONE
     Indication: SYSTEMIC LUPUS ERYTHEMATOSUS
     Dosage: 30MG TWICE PER DAY
     Route: 048
     Dates: start: 20130816, end: 20130829
  55. MYCOPHENOLATE MOFETIL. [Concomitant]
     Active Substance: MYCOPHENOLATE MOFETIL
     Indication: SYSTEMIC LUPUS ERYTHEMATOSUS
     Dosage: 1.5G TWICE PER DAY
     Route: 048
     Dates: start: 20130830, end: 20130904
  56. CEFTRIAXONE. [Concomitant]
     Active Substance: CEFTRIAXONE
     Indication: PNEUMONIA
     Dosage: 1000MG TWICE PER DAY
     Route: 042
     Dates: start: 20131027, end: 20131101
  57. METHYLPREDNISOLONE [Concomitant]
     Active Substance: METHYLPREDNISOLONE
     Indication: DYSPNOEA
     Dosage: 20MG TWICE PER DAY
     Route: 042
     Dates: start: 20131027, end: 20131104
  58. FUROSEMIDE. [Concomitant]
     Active Substance: FUROSEMIDE
     Indication: OEDEMA
     Dosage: 20MG TWICE PER DAY
     Route: 042
     Dates: start: 20131029, end: 20131101
  59. MIDAZOLAM [Concomitant]
     Active Substance: MIDAZOLAM\MIDAZOLAM HYDROCHLORIDE
     Dosage: 150MG CONTINUOUS
     Route: 042
     Dates: start: 20131031, end: 20131125
  60. FUROSEMIDE. [Concomitant]
     Active Substance: FUROSEMIDE
     Indication: OEDEMA
     Dosage: 40MG TWICE PER DAY
     Route: 042
     Dates: start: 20131101, end: 20131113
  61. MOSAPRIDE CITRATE [Concomitant]
     Active Substance: MOSAPRIDE CITRATE
     Indication: GASTRITIS
     Dosage: 5MG THREE TIMES PER DAY
     Route: 048
     Dates: start: 20131101, end: 20131126
  62. METOCLOPRAMIDE. [Concomitant]
     Active Substance: METOCLOPRAMIDE
     Indication: GASTRITIS
     Dosage: 9.08MG THREE TIMES PER DAY
     Route: 042
     Dates: start: 20131101, end: 20131116
  63. ENOXAPARIN SODIUM. [Concomitant]
     Active Substance: ENOXAPARIN SODIUM
     Dosage: 50MG TWICE PER DAY
     Route: 058
     Dates: start: 20131107, end: 20131115
  64. VITAMIN B6 [Concomitant]
     Active Substance: PYRIDOXINE HYDROCHLORIDE
     Indication: PROPHYLAXIS
     Dosage: 50MG PER DAY
     Route: 048
     Dates: start: 20131114, end: 20131126
  65. IBUPROFEN. [Concomitant]
     Active Substance: IBUPROFEN
     Indication: PYREXIA
     Dosage: 400MG SINGLE DOSE
     Route: 048
     Dates: start: 20131116, end: 20131116
  66. NOREPINEPHRINE [Concomitant]
     Active Substance: NOREPINEPHRINE\NOREPINEPHRINE BITARTRATE
     Indication: BLOOD PRESSURE DECREASED
     Dosage: 8MG CONTINUOUS
     Route: 042
     Dates: start: 20131125, end: 20131126
  67. DILTIAZEM HCL [Concomitant]
     Active Substance: DILTIAZEM HYDROCHLORIDE
     Indication: HYPERTENSION
     Dosage: 30MG FOUR TIMES PER DAY
     Route: 048
     Dates: start: 20131124, end: 20131125
  68. PREDNISOLONE. [Concomitant]
     Active Substance: PREDNISOLONE
     Indication: SYSTEMIC LUPUS ERYTHEMATOSUS
     Dosage: 25MG TWICE PER DAY
     Route: 048
     Dates: start: 20130830, end: 20130904
  69. PREDNISOLONE. [Concomitant]
     Active Substance: PREDNISOLONE
     Indication: SYSTEMIC LUPUS ERYTHEMATOSUS
     Dosage: 15MG AT NIGHT
     Route: 048
     Dates: start: 20130920, end: 20130926
  70. PREDNISOLONE. [Concomitant]
     Active Substance: PREDNISOLONE
     Indication: SYSTEMIC LUPUS ERYTHEMATOSUS
     Dosage: 15MG TWICE PER DAY
     Route: 048
     Dates: start: 20130927, end: 20131003
  71. PREDNISOLONE. [Concomitant]
     Active Substance: PREDNISOLONE
     Indication: SYSTEMIC LUPUS ERYTHEMATOSUS
     Dosage: 15MG IN THE MORNING
     Route: 048
     Dates: start: 20131004, end: 20131010
  72. PREDNISOLONE. [Concomitant]
     Active Substance: PREDNISOLONE
     Indication: SYSTEMIC LUPUS ERYTHEMATOSUS
     Dosage: 10MG TWICE PER DAY
     Route: 048
     Dates: start: 20131011, end: 20131017
  73. HYDROCORTISONE SODIUM SUCCINATE [Concomitant]
     Active Substance: HYDROCORTISONE SODIUM SUCCINATE
     Indication: DYSPNOEA
     Dosage: 100MG TWICE PER DAY
     Route: 042
     Dates: start: 20131026, end: 20131027
  74. IBUPROFEN. [Concomitant]
     Active Substance: IBUPROFEN
     Indication: PYREXIA
     Dosage: 400MG AS REQUIRED
     Route: 048
     Dates: start: 20131031, end: 20131119
  75. MORPHINE HCL [Concomitant]
     Active Substance: MORPHINE HYDROCHLORIDE
     Indication: PAIN
     Dosage: 10MG SINGLE DOSE
     Route: 042
     Dates: start: 20131031, end: 20131031
  76. MORPHINE HCL [Concomitant]
     Active Substance: MORPHINE HYDROCHLORIDE
     Indication: DYSPNOEA
     Dosage: 10MG SINGLE DOSE
     Route: 042
     Dates: start: 20131104, end: 20131104
  77. ISONIAZID. [Concomitant]
     Active Substance: ISONIAZID
     Indication: TUBERCULOSIS
     Dosage: 300MG PER DAY
     Route: 048
     Dates: start: 20131114, end: 20131126
  78. INDOMETHACIN. [Concomitant]
     Active Substance: INDOMETHACIN
     Indication: PYREXIA
     Dosage: 50MG AS REQUIRED
     Route: 054
     Dates: start: 20131115, end: 20131126
  79. TEICOPLANIN [Concomitant]
     Active Substance: TEICOPLANIN
     Indication: PNEUMONIA
     Dosage: 400MG SINGLE DOSE
     Route: 042
     Dates: start: 20131116, end: 20131116
  80. RIFAMPICIN [Concomitant]
     Active Substance: RIFAMPIN
     Indication: TUBERCULOSIS
     Dosage: 600MG PER DAY
     Route: 048
     Dates: start: 20131118, end: 20131126
  81. NEOMYCIN BACITRACIN [Concomitant]
     Indication: WOUND TREATMENT
     Dosage: 30MG SINGLE DOSE
     Route: 061
     Dates: start: 20131120, end: 20131120
  82. TEICOPLANIN [Concomitant]
     Active Substance: TEICOPLANIN
     Indication: PNEUMONIA
     Dosage: 400MG SINGLE DOSE
     Route: 042
     Dates: start: 20131122, end: 20131122
  83. VORICONAZOLE. [Concomitant]
     Active Substance: VORICONAZOLE
     Indication: PNEUMONIA
     Dosage: 200MG TWICE PER DAY
     Route: 042
     Dates: start: 20131125
  84. EPINEPHRINE. [Concomitant]
     Active Substance: EPINEPHRINE
     Indication: BRADYCARDIA
     Dosage: 10MG AS REQUIRED
     Route: 042
     Dates: start: 20131125, end: 20131125
  85. MYCOPHENOLATE MOFETIL. [Concomitant]
     Active Substance: MYCOPHENOLATE MOFETIL
     Indication: SYSTEMIC LUPUS ERYTHEMATOSUS
     Dosage: 1.5G PER DAY
     Route: 048
     Dates: start: 20130907, end: 20130907
  86. MYCOPHENOLATE MOFETIL. [Concomitant]
     Active Substance: MYCOPHENOLATE MOFETIL
     Indication: PRODUCT USED FOR UNKNOWN INDICATION
  87. LEVOFLOXACIN [Concomitant]
     Active Substance: LEVOFLOXACIN
     Indication: PNEUMONIA
     Dosage: 750MG PER DAY
     Route: 042
     Dates: start: 20131026, end: 20131027
  88. ULTRACET [Concomitant]
     Active Substance: ACETAMINOPHEN\TRAMADOL HYDROCHLORIDE
     Indication: PAIN
     Dosage: 1TAB FOUR TIMES PER DAY
     Route: 048
     Dates: start: 20131031, end: 20131107
  89. CISATRACURIUM [Concomitant]
     Active Substance: CISATRACURIUM
     Indication: PRODUCT USED FOR UNKNOWN INDICATION
     Dosage: 100MG CONTINUOUS
     Route: 042
     Dates: start: 20131031, end: 20131031
  90. TRIAMCINOLONE [Concomitant]
     Active Substance: TRIAMCINOLONE
     Indication: MOUTH ULCERATION
     Dosage: 5000MG SINGLE DOSE
     Route: 061
     Dates: start: 20131103, end: 20131103
  91. TEICOPLANIN [Concomitant]
     Active Substance: TEICOPLANIN
     Indication: PNEUMONIA
     Dosage: 400MG TWICE PER DAY
     Route: 042
     Dates: start: 20131123, end: 20131123
  92. VORICONAZOLE. [Concomitant]
     Active Substance: VORICONAZOLE
     Indication: PNEUMONIA
     Dosage: 800MG SINGLE DOSE
     Route: 042
     Dates: start: 20131125, end: 20131125
  93. EPINEPHRINE. [Concomitant]
     Active Substance: EPINEPHRINE
     Indication: BRADYCARDIA
     Dosage: 10MG AS REQUIRED
     Route: 042
     Dates: start: 20131126, end: 20131126
  94. PREDNISOLONE. [Concomitant]
     Active Substance: PREDNISOLONE
     Indication: SYSTEMIC LUPUS ERYTHEMATOSUS
     Dosage: 15MG TWICE PER DAY
     Route: 048
     Dates: start: 20130913, end: 20130919
  95. PREDNISOLONE. [Concomitant]
     Active Substance: PREDNISOLONE
     Indication: SYSTEMIC LUPUS ERYTHEMATOSUS
     Dosage: 10MG PER DAY
     Route: 048
     Dates: start: 20130913, end: 20130919
  96. PREDNISOLONE. [Concomitant]
     Active Substance: PREDNISOLONE
     Indication: SYSTEMIC LUPUS ERYTHEMATOSUS
     Dosage: 20MG IN THE MORNING
     Route: 048
     Dates: start: 20130920, end: 20130926
  97. PREDNISOLONE. [Concomitant]
     Active Substance: PREDNISOLONE
     Indication: SYSTEMIC LUPUS ERYTHEMATOSUS
     Dosage: 10MG AT NIGHT
     Route: 048
     Dates: start: 20131004, end: 20131010

REACTIONS (7)
  - Cytomegalovirus infection [Fatal]
  - Acute respiratory failure [Fatal]
  - Pneumonia [Fatal]
  - Pulmonary tuberculosis [Fatal]
  - Influenza [Fatal]
  - Pneumomediastinum [Fatal]
  - Pneumocystis jirovecii pneumonia [Fatal]

NARRATIVE: CASE EVENT DATE: 20131026
